FAERS Safety Report 7385369-0 (Version None)
Quarter: 2011Q1

REPORT INFORMATION
  Report Type: 
  Country: None (occurrence: None)
  Receive Date: 20110330
  Receipt Date: 20101116
  Transmission Date: 20110831
  Serious: No
  Sender: FDA-Public Use
  Company Number: US-MYLANLABS-2010S1021226

PATIENT
  Sex: Female

DRUGS (5)
  1. EMSAM [Suspect]
     Indication: DEPRESSION
     Dosage: CHANGED QW
     Route: 062
     Dates: start: 20100101
  2. VALIUM [Concomitant]
  3. AMBIEN [Concomitant]
  4. EMSAM [Suspect]
     Indication: PANIC ATTACK
     Dosage: CHANGED QW
     Route: 062
     Dates: start: 20100101
  5. GABAPENTIN [Concomitant]

REACTIONS (3)
  - DEPRESSION [None]
  - DRUG INEFFECTIVE [None]
  - INSOMNIA [None]
